FAERS Safety Report 16309472 (Version 3)
Quarter: 2019Q2

REPORT INFORMATION
  Report Type: Report from Study
  Country: None (occurrence: CH)
  Receive Date: 20190514
  Receipt Date: 20190530
  Transmission Date: 20190711
  Serious: Yes (Other)
  Sender: FDA-Public Use
  Company Number: CH-ABBVIE-19S-151-2781720-00

PATIENT
  Sex: Male

DRUGS (4)
  1. DUODOPA [Suspect]
     Active Substance: CARBIDOPA\LEVODOPA
     Indication: PARKINSON^S DISEASE
     Route: 050
     Dates: start: 20140113, end: 20181127
  2. GUTRON [Concomitant]
     Active Substance: MIDODRINE
     Indication: BLOOD PRESSURE ABNORMAL
  3. DUODOPA [Suspect]
     Active Substance: CARBIDOPA\LEVODOPA
     Dosage: MD 3ML CRD 0.4 ML/H ED 0.2 ML ED BLOCKING TIME 1 H LOCK LEVEL 016 H THERAPY
     Route: 050
     Dates: start: 201905
  4. DUODOPA [Suspect]
     Active Substance: CARBIDOPA\LEVODOPA
     Dosage: CRD 0.5 ML/H, ED 0.2 ML. 16 H THERAPY
     Route: 050
     Dates: start: 20190506, end: 201905

REACTIONS (12)
  - Device alarm issue [Unknown]
  - Basal cell carcinoma [Unknown]
  - Hallucination [Not Recovered/Not Resolved]
  - Rapid eye movement sleep behaviour disorder [Unknown]
  - Weight decreased [Unknown]
  - Tremor [Unknown]
  - Salivary hypersecretion [Not Recovered/Not Resolved]
  - Bradykinesia [Unknown]
  - Dysphagia [Unknown]
  - Akinesia [Unknown]
  - Blood pressure abnormal [Unknown]
  - Muscle rigidity [Not Recovered/Not Resolved]
